FAERS Safety Report 8885604 (Version 1)
Quarter: 2012Q4

REPORT INFORMATION
  Report Type: Report from Study
  Country: US (occurrence: US)
  Receive Date: 20121101
  Receipt Date: 20121101
  Transmission Date: 20130627
  Serious: Yes (Hospitalization, Other)
  Sender: FDA-Public Use
  Company Number: US-PFIZER INC-2012269190

PATIENT
  Age: 59 Year
  Sex: Female
  Weight: 80.27 kg

DRUGS (12)
  1. CELEBREX [Suspect]
     Indication: ANKYLOSING SPONDYLITIS
     Dosage: UNK
     Dates: end: 201111
  2. CELEBREX [Suspect]
     Indication: RA
     Dosage: UNK
     Dates: start: 201208, end: 201209
  3. HUMIRA [Suspect]
     Indication: RA
     Dosage: 40 mg, 1 in 2 wk
     Dates: start: 2008
  4. HUMIRA [Suspect]
     Indication: ANKYLOSING SPONDYLITIS
  5. AMLODIPINE [Concomitant]
     Indication: HYPERTENSION
     Dosage: UNK
  6. DETROL LA [Concomitant]
     Indication: BLADDER DISORDER
     Dosage: UNK
  7. ESTRADIOL [Concomitant]
     Indication: HORMONE REPLACEMENT THERAPY
     Dosage: UNK
  8. SPIRONOLACTONE [Concomitant]
     Indication: HYPERTENSION
     Dosage: UNK
  9. OMEPRAZOLE [Concomitant]
     Indication: GASTROESOPHAGEAL REFLUX
     Dosage: UNK
  10. METOPROLOL [Concomitant]
     Indication: HYPERTENSION
     Dosage: UNK
  11. HYDROXYCHLOROQUINE [Concomitant]
     Indication: RA
     Dosage: UNK
  12. ZOPIDEM [Concomitant]
     Indication: ANXIETY
     Dosage: UNK

REACTIONS (14)
  - Dyspnoea [Recovered/Resolved]
  - Wheezing [Recovered/Resolved]
  - Oedema peripheral [Unknown]
  - Oedema peripheral [Unknown]
  - Joint swelling [Unknown]
  - Renal disorder [Unknown]
  - Protein urine present [Unknown]
  - Impaired gastric emptying [Recovered/Resolved]
  - Arthralgia [Unknown]
  - Weight decreased [Unknown]
  - Dyspepsia [Recovered/Resolved]
  - Diarrhoea [Unknown]
  - Injection site bruising [Unknown]
  - Laceration [Recovered/Resolved]
